FAERS Safety Report 5279499-7 (Version None)
Quarter: 2007Q1

REPORT INFORMATION
  Report Type: 
  Country: None (occurrence: None)
  Receive Date: 20070328
  Receipt Date: 20070316
  Transmission Date: 20070707
  Serious: Yes (Hospitalization, Other)
  Sender: FDA-Public Use
  Company Number: FR-PFIZER INC-2006139917

PATIENT
  Sex: Female

DRUGS (8)
  1. CELEBREX [Suspect]
     Indication: MUSCULOSKELETAL PAIN
     Route: 048
  2. ALL OTHER THERAPEUTIC PRODUCTS [Concomitant]
  3. DIFRAREL [Concomitant]
     Indication: VENOUS INSUFFICIENCY
     Route: 048
  4. AMIODARONE HCL [Concomitant]
     Indication: ATRIAL FIBRILLATION
     Route: 048
  5. MOLSIDOMINE [Concomitant]
     Indication: CORONARY ARTERY INSUFFICIENCY
     Route: 048
  6. ALDACTONE [Concomitant]
     Indication: HYPERTENSION
     Route: 048
  7. FLUINDIONE [Concomitant]
     Indication: ATRIAL FIBRILLATION
     Route: 048
  8. FENOFIBRATE [Concomitant]
     Indication: DYSLIPIDAEMIA
     Route: 048

REACTIONS (3)
  - DRUG INTERACTION [None]
  - EPISTAXIS [None]
  - INTERNATIONAL NORMALISED RATIO DECREASED [None]
